FAERS Safety Report 7489672-5 (Version None)
Quarter: 2011Q2

REPORT INFORMATION
  Report Type: 
  Country: None (occurrence: None)
  Receive Date: 20110519
  Receipt Date: 20110511
  Transmission Date: 20111010
  Serious: No
  Sender: FDA-Public Use
  Company Number: US-BIOGENIDEC-2011BI017073

PATIENT
  Sex: Female

DRUGS (1)
  1. TYSABRI [Suspect]
     Indication: MULTIPLE SCLEROSIS
     Route: 042
     Dates: start: 20100408, end: 20110301

REACTIONS (7)
  - FALL [None]
  - BALANCE DISORDER [None]
  - GAIT DISTURBANCE [None]
  - HYPOACUSIS [None]
  - CLAUSTROPHOBIA [None]
  - VISUAL IMPAIRMENT [None]
  - CONTUSION [None]
